FAERS Safety Report 9398292 (Version 5)
Quarter: 2013Q4

REPORT INFORMATION
  Report Type: Spontaneous
  Country: CO (occurrence: CO)
  Receive Date: 20130712
  Receipt Date: 20131002
  Transmission Date: 20140711
  Serious: Yes (Other)
  Sender: FDA-Public Use
  Company Number: CO-VERTEX PHARMACEUTICALS INC-2013-007128

PATIENT
  Age: 50 Year
  Sex: Male
  Weight: 85 kg

DRUGS (3)
  1. INCIVO [Suspect]
     Indication: HEPATITIS C
     Dosage: 750 MG, TID (2 X 375 MG TABLET)
     Route: 048
     Dates: start: 20130611
  2. INTERFERON [Concomitant]
     Indication: HEPATITIS C
     Dosage: 180 ?G, QW (DOSAGE FORM: AMPOULES)
     Route: 058
     Dates: start: 20130611
  3. RIBAVIRIN [Concomitant]
     Indication: HEPATITIS C
     Dosage: 1200 MG, QD (6 X 200 MG TABLET)
     Route: 048
     Dates: start: 20130611

REACTIONS (20)
  - Blood count abnormal [Unknown]
  - Anorectal disorder [Not Recovered/Not Resolved]
  - Nausea [Unknown]
  - Influenza [Unknown]
  - Malaise [Unknown]
  - Nasal dryness [Unknown]
  - Nasal discomfort [Unknown]
  - Abdominal pain [Unknown]
  - Abdominal rigidity [Unknown]
  - Libido decreased [Unknown]
  - Abdominal distension [Unknown]
  - Nasal congestion [Not Recovered/Not Resolved]
  - Epistaxis [Not Recovered/Not Resolved]
  - Cough [Unknown]
  - Decreased appetite [Unknown]
  - Fatigue [Unknown]
  - Fatigue [Unknown]
  - Diarrhoea [Unknown]
  - Thrombocytopenia [Unknown]
  - Haemoglobin decreased [Unknown]
